FAERS Safety Report 23598680 (Version 2)
Quarter: 2024Q1

REPORT INFORMATION
  Report Type: Report from Study
  Country: CO (occurrence: CO)
  Receive Date: 20240306
  Receipt Date: 20240327
  Transmission Date: 20240410
  Serious: Yes (Other)
  Sender: FDA-Public Use
  Company Number: CO-002147023-NVSC2023CO065384

PATIENT
  Sex: Female
  Weight: 82 kg

DRUGS (2)
  1. KISQALI [Suspect]
     Active Substance: RIBOCICLIB
     Indication: Breast cancer metastatic
     Dosage: 600 MG, QD
     Route: 048
  2. KISQALI [Suspect]
     Active Substance: RIBOCICLIB
     Indication: Hormone receptor positive HER2 negative breast cancer
     Dosage: 600 MG, QD
     Route: 048
     Dates: start: 20220608

REACTIONS (7)
  - Carcinoembryonic antigen increased [Unknown]
  - Breast cancer metastatic [Unknown]
  - Malignant neoplasm progression [Unknown]
  - Decreased immune responsiveness [Unknown]
  - Burning sensation [Unknown]
  - Alopecia [Unknown]
  - Drug ineffective [Unknown]
